FAERS Safety Report 7232031-0 (Version None)
Quarter: 2011Q1

REPORT INFORMATION
  Report Type: 
  Country: None (occurrence: None)
  Receive Date: 20110118
  Receipt Date: 20110112
  Transmission Date: 20110831
  Serious: Yes (Death)
  Sender: FDA-Public Use
  Company Number: US-ABBOTT-10P-163-0673105-02

PATIENT
  Sex: Male

DRUGS (15)
  1. FLUOCINONIDE [Concomitant]
     Indication: PYODERMA GANGRENOSUM
     Dates: start: 20081028
  2. LOTRIMIN AF [Concomitant]
     Indication: ANTIFUNGAL PROPHYLAXIS
     Dates: start: 20090201
  3. TRAMADOL [Concomitant]
     Indication: NECK PAIN
     Dates: start: 20091101
  4. FERROUS SULFATE [Concomitant]
     Indication: ANAEMIA
     Dates: start: 20080206
  5. LANTUS [Concomitant]
     Dates: start: 20100401
  6. OSCAL D [Concomitant]
     Indication: MEDICAL DIET
     Dosage: 1250MG/200 UNIT
     Dates: start: 20070101
  7. MORPHINE [Concomitant]
     Indication: PAIN
     Dates: start: 20070520
  8. NORVASC [Concomitant]
     Indication: HYPERTENSION
     Dates: start: 20080101
  9. ASACOL [Concomitant]
     Indication: CROHN'S DISEASE
     Dates: start: 20090917
  10. NOVOLOG [Concomitant]
     Indication: DIABETES MELLITUS
     Dosage: 2-6 UNITS TID
     Dates: start: 20100401
  11. OMEPRAZOLE [Concomitant]
     Indication: GASTROOESOPHAGEAL REFLUX DISEASE
     Dates: start: 20070101
  12. PROTOPIC [Concomitant]
     Indication: PYODERMA GANGRENOSUM
     Dates: start: 20070101
  13. HUMIRA [Suspect]
     Indication: CROHN'S DISEASE
     Route: 058
  14. LANTUS [Concomitant]
     Indication: DIABETES MELLITUS
     Dates: start: 20081209, end: 20100401
  15. SIMVASTATIN [Concomitant]
     Indication: HYPERCHOLESTEROLAEMIA
     Dates: start: 20100309

REACTIONS (2)
  - ARTERIOSCLEROSIS [None]
  - HYPERTENSION [None]
